FAERS Safety Report 8856592 (Version 1)
Quarter: 2012Q4

REPORT INFORMATION
  Report Type: Spontaneous
  Country: US (occurrence: None)
  Receive Date: 20121024
  Receipt Date: 20121024
  Transmission Date: 20130627
  Serious: Yes (Hospitalization)
  Sender: FDA-Public Use
  Company Number: None

PATIENT
  Sex: Male

DRUGS (1)
  1. METHYLPREDNISOLONE ACETATE [Suspect]
     Indication: PAIN
     Dates: start: 20120814

REACTIONS (4)
  - Meningitis [None]
  - Headache [None]
  - Musculoskeletal stiffness [None]
  - Vision blurred [None]
